FAERS Safety Report 6453967-4 (Version None)
Quarter: 2009Q4

REPORT INFORMATION
  Report Type: 
  Country: None (occurrence: None)
  Receive Date: 20091124
  Receipt Date: 20091023
  Transmission Date: 20100525
  Serious: No
  Sender: FDA-Public Use
  Company Number: US-BAYER-200938692NA

PATIENT
  Sex: Male

DRUGS (6)
  1. MAGNEVIST [Suspect]
     Indication: ANGIOGRAM
     Dosage: TOTAL DAILY DOSE: 33 ML
     Route: 042
     Dates: start: 20090709, end: 20090709
  2. PRAVACHOL [Concomitant]
  3. METFORMIN HCL [Concomitant]
  4. LISINOPRIL [Concomitant]
  5. CARTIA XT [Concomitant]
  6. VASOTEC [Concomitant]

REACTIONS (1)
  - UNEVALUABLE EVENT [None]
